FAERS Safety Report 16823983 (Version 1)
Quarter: 2019Q3

REPORT INFORMATION
  Report Type: Other
  Country: CA (occurrence: CA)
  Receive Date: 20190918
  Receipt Date: 20190918
  Transmission Date: 20191005
  Serious: Yes (Other)
  Sender: FDA-Public Use
  Company Number: CA-PFIZER INC-2019396352

PATIENT
  Age: 57 Year
  Sex: Male

DRUGS (20)
  1. LAMIVUDINE. [Concomitant]
     Active Substance: LAMIVUDINE
     Indication: ANTIVIRAL PROPHYLAXIS
     Dosage: UNK
  2. VALGANCICLOVIR. [Concomitant]
     Active Substance: VALGANCICLOVIR
     Indication: ANTIVIRAL PROPHYLAXIS
     Dosage: UNK
  3. URSODEOXYCHOLIC ACID [Concomitant]
     Active Substance: URSODIOL
     Dosage: 15 MG/KG, UNK
     Route: 065
  4. VALGANCICLOVIR. [Concomitant]
     Active Substance: VALGANCICLOVIR
     Dosage: UNK
     Route: 065
  5. METHYLPREDNISOLONE SODIUM SUCCINATE. [Suspect]
     Active Substance: METHYLPREDNISOLONE SODIUM SUCCINATE
     Indication: IMMUNOSUPPRESSION
     Dosage: UNK
     Route: 042
  6. MYCOPHENOLATE MOFETIL. [Suspect]
     Active Substance: MYCOPHENOLATE MOFETIL
     Dosage: UNK
     Route: 065
  7. PLACEBO [Concomitant]
     Active Substance: UNSPECIFIED INGREDIENT
     Dosage: UNK
     Route: 065
  8. RIBAVIRIN. [Concomitant]
     Active Substance: RIBAVIRIN
     Indication: HEPATITIS C
     Dosage: UNK
  9. URSODEOXYCHOLIC ACID [Concomitant]
     Active Substance: URSODIOL
     Indication: HEPATITIS C
     Dosage: 15 MG/KG, UNK
  10. RIBAVIRIN. [Concomitant]
     Active Substance: RIBAVIRIN
     Dosage: UNK
     Route: 065
  11. TELAPREVIR [Concomitant]
     Active Substance: TELAPREVIR
     Indication: HEPATITIS C
     Dosage: UNK
  12. PLACEBO [Concomitant]
     Active Substance: UNSPECIFIED INGREDIENT
     Indication: HEPATITIS C
     Dosage: UNK
  13. CICLOSPORIN [Suspect]
     Active Substance: CYCLOSPORINE
     Indication: IMMUNOSUPPRESSION
     Dosage: UNK
     Route: 048
  14. SULFAMETHOXAZOLE/TRIMETHOPRIM [Concomitant]
     Dosage: UNK
     Route: 065
  15. TACROLIMUS. [Suspect]
     Active Substance: TACROLIMUS
     Indication: IMMUNOSUPPRESSION
     Dosage: UNK
  16. MYCOPHENOLATE MOFETIL. [Suspect]
     Active Substance: MYCOPHENOLATE MOFETIL
     Indication: IMMUNOSUPPRESSION
     Dosage: UNK
  17. PREDNISONE. [Suspect]
     Active Substance: PREDNISONE
     Indication: IMMUNOSUPPRESSION
     Dosage: UNK
     Route: 048
  18. TACROLIMUS. [Suspect]
     Active Substance: TACROLIMUS
     Dosage: UNK
     Route: 065
  19. LAMIVUDINE. [Concomitant]
     Active Substance: LAMIVUDINE
     Dosage: UNK
     Route: 065
  20. SULFAMETHOXAZOLE/TRIMETHOPRIM [Concomitant]
     Indication: ANTIFUNGAL PROPHYLAXIS
     Dosage: UNK

REACTIONS (3)
  - Antimitochondrial antibody positive [Unknown]
  - Transplant rejection [Unknown]
  - Drug ineffective [Unknown]
